FAERS Safety Report 9914461 (Version 1)
Quarter: 2014Q1

REPORT INFORMATION
  Report Type: Spontaneous
  Country: US (occurrence: US)
  Receive Date: 20140220
  Receipt Date: 20140220
  Transmission Date: 20141002
  Serious: No
  Sender: FDA-Public Use
  Company Number: US-GILEAD-2012-0052176

PATIENT
  Sex: Male

DRUGS (1)
  1. ATRIPLA [Suspect]
     Indication: HIV INFECTION
     Dosage: UNK
     Dates: start: 2008

REACTIONS (7)
  - Neuropathy peripheral [Unknown]
  - Prostatic obstruction [Unknown]
  - Abnormal dreams [Recovered/Resolved]
  - Euphoric mood [Recovered/Resolved]
  - Fatigue [Recovered/Resolved]
  - Judgement impaired [Recovered/Resolved]
  - Hangover [Recovered/Resolved]
